FAERS Safety Report 5771399-9 (Version None)
Quarter: 2008Q2

REPORT INFORMATION
  Report Type: 
  Country: None (occurrence: None)
  Receive Date: 20080610
  Receipt Date: 20080602
  Transmission Date: 20081010
  Serious: Yes (Other)
  Sender: FDA-Public Use
  Company Number: S08-USA-01576-02

PATIENT
  Sex: Male
  Weight: 4.4815 kg

DRUGS (2)
  1. LEXAPRO [Suspect]
     Indication: DEPRESSION
     Dosage: 10 MG QD TRANSPLACENTAL
     Route: 064
     Dates: start: 20070601, end: 20080316
  2. LEXAPRO [Suspect]
     Indication: DEPRESSION
     Dosage: 10 MG QD BF
     Dates: start: 20080317

REACTIONS (6)
  - CAESAREAN SECTION [None]
  - DRUG EXPOSURE VIA BREAST MILK [None]
  - EYE ROLLING [None]
  - FATIGUE [None]
  - LARGE FOR DATES BABY [None]
  - MATERNAL DEATH AFFECTING FOETUS [None]
